FAERS Safety Report 5250621-1 (Version None)
Quarter: 2007Q1

REPORT INFORMATION
  Report Type: 
  Country: None (occurrence: None)
  Receive Date: 20070228
  Receipt Date: 20060606
  Transmission Date: 20070707
  Serious: Yes (Hospitalization)
  Sender: FDA-Public Use
  Company Number: US-GLAXOSMITHKLINE-A0608072A

PATIENT
  Age: 29 Year
  Sex: Male

DRUGS (5)
  1. LAMICTAL [Suspect]
     Indication: BIPOLAR DISORDER
     Dosage: 100MG PER DAY
     Route: 048
  2. PAXIL [Suspect]
     Indication: DEPRESSION
     Route: 048
  3. WELLBUTRIN [Concomitant]
  4. SEROQUEL [Concomitant]
  5. DEPAKOTE [Concomitant]

REACTIONS (2)
  - AFFECT LABILITY [None]
  - MANIA [None]
